FAERS Safety Report 21580052 (Version 2)
Quarter: 2023Q1

REPORT INFORMATION
  Report Type: Report from Study
  Country: KR (occurrence: KR)
  Receive Date: 20221110
  Receipt Date: 20230201
  Transmission Date: 20230417
  Serious: Yes (Hospitalization, Other)
  Sender: FDA-Public Use
  Company Number: KR-TAKEDA-2022TUS082416

PATIENT
  Age: 24 Year
  Sex: Female
  Weight: 51 kg

DRUGS (36)
  1. VEDOLIZUMAB [Suspect]
     Active Substance: VEDOLIZUMAB
     Indication: Crohn^s disease
     Dosage: 300 MILLIGRAM, QD
     Route: 042
     Dates: start: 20211008, end: 20211008
  2. VEDOLIZUMAB [Suspect]
     Active Substance: VEDOLIZUMAB
     Dosage: 300 MILLIGRAM, QD
     Route: 042
     Dates: start: 20211022, end: 20211022
  3. VEDOLIZUMAB [Suspect]
     Active Substance: VEDOLIZUMAB
     Dosage: 300 MILLIGRAM, QD
     Route: 042
     Dates: start: 20211119, end: 20211119
  4. VEDOLIZUMAB [Suspect]
     Active Substance: VEDOLIZUMAB
     Dosage: 300 MILLIGRAM, QD
     Route: 042
     Dates: start: 20211217, end: 20211217
  5. VEDOLIZUMAB [Suspect]
     Active Substance: VEDOLIZUMAB
     Dosage: 300 MILLIGRAM, QD
     Route: 042
     Dates: start: 20210114, end: 20210114
  6. VEDOLIZUMAB [Suspect]
     Active Substance: VEDOLIZUMAB
     Dosage: 300 MILLIGRAM, QD
     Route: 042
     Dates: start: 20210311, end: 20210311
  7. VEDOLIZUMAB [Suspect]
     Active Substance: VEDOLIZUMAB
     Dosage: 300 MILLIGRAM, QD
     Route: 042
     Dates: start: 20210506, end: 20210506
  8. VEDOLIZUMAB [Suspect]
     Active Substance: VEDOLIZUMAB
     Dosage: 300 MILLIGRAM, QD
     Route: 042
     Dates: start: 20210603, end: 20210603
  9. VEDOLIZUMAB [Suspect]
     Active Substance: VEDOLIZUMAB
     Dosage: 300 MILLIGRAM, QD
     Route: 042
     Dates: start: 20210701, end: 20210701
  10. VEDOLIZUMAB [Suspect]
     Active Substance: VEDOLIZUMAB
     Dosage: 300 MILLIGRAM, QD
     Route: 042
     Dates: start: 20210729, end: 20210729
  11. VEDOLIZUMAB [Suspect]
     Active Substance: VEDOLIZUMAB
     Dosage: 300 MILLIGRAM, QD
     Route: 042
     Dates: start: 20210826, end: 20210826
  12. VEDOLIZUMAB [Suspect]
     Active Substance: VEDOLIZUMAB
     Dosage: 300 MILLIGRAM, QD
     Route: 042
     Dates: start: 20210923, end: 20210923
  13. COOLPREP [Concomitant]
     Indication: Premedication
     Dosage: UNK, QD
     Route: 048
     Dates: start: 20221011
  14. GASOCOL [Concomitant]
     Indication: Premedication
     Dosage: 10 MILLILITER, QD
     Route: 048
     Dates: start: 20221011
  15. MEPERIDINE [Concomitant]
     Active Substance: MEPERIDINE
     Indication: Premedication
     Dosage: 25 MILLIGRAM, QD
     Route: 042
     Dates: start: 20221012
  16. FREEFOL MCT [Concomitant]
     Indication: Premedication
     Dosage: 160 MILLILITER, QD
     Route: 042
     Dates: start: 20221012
  17. Midazolam bkw [Concomitant]
     Indication: Premedication
     Dosage: 3 MILLIGRAM, QD
     Route: 042
     Dates: start: 20221012
  18. D3 BASE [Concomitant]
     Indication: Vitamin supplementation
     Dosage: 25 MILLILITER, QD
     Route: 048
     Dates: start: 20220923
  19. RIFAXIMIN [Concomitant]
     Active Substance: RIFAXIMIN
     Dosage: UNK UNK, TID
     Route: 048
     Dates: start: 20220509
  20. Trima [Concomitant]
     Dosage: 200 MILLIGRAM, TID
     Route: 048
     Dates: start: 20220905
  21. REBAMIPIDE [Concomitant]
     Active Substance: REBAMIPIDE
     Dosage: UNK UNK, TID
     Route: 048
     Dates: start: 20220905
  22. SIMECOPAN [Concomitant]
     Dosage: UNK UNK, TID
     Route: 048
     Dates: start: 20220905
  23. FLOSPAN [Concomitant]
     Dosage: UNK UNK, TID
     Route: 048
     Dates: start: 20220905
  24. GASPIRAN [Concomitant]
     Dosage: 15 MILLIGRAM, TID
     Route: 048
     Dates: start: 20220905
  25. PANPRAZOL [Concomitant]
     Dosage: 40 MILLIGRAM, TID
     Route: 048
     Dates: start: 20220905
  26. MUCOSTEN [Concomitant]
     Indication: Premedication
     Dosage: 600 MILLIGRAM, BID
     Route: 042
     Dates: start: 20221020
  27. TYLENOL [Concomitant]
     Active Substance: ACETAMINOPHEN
     Indication: Premedication
     Dosage: 1300 MILLIGRAM, QD
     Route: 042
     Dates: start: 20221021
  28. XYZAL [Concomitant]
     Active Substance: LEVOCETIRIZINE DIHYDROCHLORIDE
     Indication: Premedication
     Dosage: 10 MILLIGRAM, QD
     Route: 048
     Dates: start: 20221021
  29. HYDROCORTISONE SODIUM SUCCINATE [Concomitant]
     Active Substance: HYDROCORTISONE SODIUM SUCCINATE
     Indication: Premedication
     Dosage: 100 MILLIGRAM, QD
     Route: 042
     Dates: start: 20221021
  30. PHENIRAMINE [Concomitant]
     Active Substance: PHENIRAMINE
     Indication: Premedication
     Dosage: 4 MILLIGRAM, QD
     Route: 042
     Dates: start: 20221021
  31. Venoferrum [Concomitant]
     Dosage: 200 MILLIGRAM, QD
     Route: 042
     Dates: start: 20221021
  32. NORFERRO [Concomitant]
     Dosage: 100 MILLIGRAM, QD
     Route: 048
     Dates: start: 20221021
  33. RABEPRAZOLE SODIUM [Concomitant]
     Active Substance: RABEPRAZOLE SODIUM
     Dosage: 10 MILLIGRAM, QD
     Route: 048
     Dates: start: 20221021
  34. PENTASA [Concomitant]
     Active Substance: MESALAMINE
     Dosage: 2000 MILLIGRAM, BID
     Route: 048
     Dates: start: 20210125
  35. PREDNISOLONE [Concomitant]
     Active Substance: PREDNISOLONE
     Dosage: 20 MILLIGRAM, QD
     Route: 048
     Dates: start: 20220923
  36. INFLIXIMAB [Concomitant]
     Active Substance: INFLIXIMAB
     Dosage: 256 MILLIGRAM, QD
     Route: 042
     Dates: start: 20221021

REACTIONS (1)
  - Crohn^s disease [Recovered/Resolved]

NARRATIVE: CASE EVENT DATE: 20220905
